FAERS Safety Report 20290849 (Version 2)
Quarter: 2022Q1

REPORT INFORMATION
  Report Type: Report from Study
  Country: CO (occurrence: CO)
  Receive Date: 20220104
  Receipt Date: 20220113
  Transmission Date: 20220423
  Serious: Yes (Life-Threatening, Hospitalization)
  Sender: FDA-Public Use
  Company Number: CO-NOVARTISPH-NVSC2021CO260570

PATIENT
  Sex: Male
  Weight: 54 kg

DRUGS (3)
  1. TASIGNA [Suspect]
     Active Substance: NILOTINIB
     Indication: Chronic myeloid leukaemia
     Dosage: 300 MG, Q12H
     Route: 048
     Dates: start: 20211105
  2. TASIGNA [Suspect]
     Active Substance: NILOTINIB
     Dosage: 150 MG, Q12H
     Route: 048
  3. TASIGNA [Suspect]
     Active Substance: NILOTINIB
     Dosage: UNK UNK, Q12H
     Route: 048

REACTIONS (13)
  - Platelet count decreased [Unknown]
  - Gait disturbance [Unknown]
  - Inflammation [Unknown]
  - Pain in extremity [Unknown]
  - Muscular weakness [Unknown]
  - Asthenia [Unknown]
  - Contusion [Unknown]
  - Drug ineffective [Unknown]
  - Headache [Unknown]
  - Influenza [Unknown]
  - Limb discomfort [Unknown]
  - Rheumatic disorder [Unknown]
  - Incorrect dose administered [Unknown]
